FAERS Safety Report 5826722-3 (Version None)
Quarter: 2008Q3

REPORT INFORMATION
  Report Type: 
  Country: None (occurrence: None)
  Receive Date: 20080730
  Receipt Date: 20080722
  Transmission Date: 20090109
  Serious: Yes (Death, Hospitalization)
  Sender: FDA-Public Use
  Company Number: US-BAYER-200811677NA

PATIENT
  Age: 54 Year
  Sex: Male

DRUGS (2)
  1. MAGNEVIST [Suspect]
     Indication: NUCLEAR MAGNETIC RESONANCE IMAGING
  2. GADOLINIUM CHLORIDE HEXAHYDRATE GADOLINIUM-CONTAINING DYE [Suspect]
     Indication: NUCLEAR MAGNETIC RESONANCE IMAGING

REACTIONS (7)
  - ABASIA [None]
  - GASTROINTESTINAL TUBE INSERTION [None]
  - MUSCLE DISORDER [None]
  - NEPHROGENIC SYSTEMIC FIBROSIS [None]
  - PAIN [None]
  - PARALYSIS [None]
  - PRURITUS [None]
